FAERS Safety Report 7984680-X (Version None)
Quarter: 2011Q4

REPORT INFORMATION
  Report Type: 
  Country: None (occurrence: None)
  Receive Date: 20111216
  Receipt Date: 20110825
  Transmission Date: 20120403
  Serious: No
  Sender: FDA-Public Use
  Company Number: US-GLAXOSMITHKLINE-A0942346A

PATIENT
  Age: 86 Year
  Sex: Female

DRUGS (10)
  1. MULTI-VITAMIN [Concomitant]
  2. VALIUM [Concomitant]
  3. EXFORGE [Concomitant]
  4. CELEXA [Concomitant]
  5. SYNTHROID [Concomitant]
  6. PROMACTA [Suspect]
     Indication: AUTOIMMUNE THROMBOCYTOPENIA
     Dosage: 25MG PER DAY
     Route: 048
     Dates: start: 20110401
  7. VITAMIN D [Concomitant]
  8. HYDROCHLOROTHIAZIDE [Concomitant]
  9. LOPRESSOR [Concomitant]
  10. XALATAN [Concomitant]

REACTIONS (1)
  - BACK PAIN [None]
